FAERS Safety Report 23575616 (Version 8)
Quarter: 2024Q3

REPORT INFORMATION
  Report Type: Spontaneous
  Country: US (occurrence: US)
  Receive Date: 20240228
  Receipt Date: 20240729
  Transmission Date: 20241016
  Serious: No
  Sender: BRISTOL MYERS SQUIBB
  Company Number: US-BRISTOL-MYERS SQUIBB COMPANY-2024-031888

PATIENT
  Age: 60 Year
  Sex: Male
  Weight: 90.72 kg

DRUGS (3)
  1. POMALYST [Suspect]
     Active Substance: POMALIDOMIDE
     Indication: Plasma cell myeloma
     Route: 048
     Dates: start: 20240122
  2. POMALYST [Suspect]
     Active Substance: POMALIDOMIDE
     Route: 048
  3. XPOVIO [Concomitant]
     Active Substance: SELINEXOR
     Indication: Plasma cell myeloma
     Route: 048

REACTIONS (10)
  - Product dose omission issue [Unknown]
  - Memory impairment [Not Recovered/Not Resolved]
  - Nausea [Recovering/Resolving]
  - Diarrhoea [Not Recovered/Not Resolved]
  - Appetite disorder [Not Recovered/Not Resolved]
  - Fatigue [Recovering/Resolving]
  - Platelet count decreased [Recovering/Resolving]
  - White blood cell count decreased [Recovering/Resolving]
  - Weight increased [Recovering/Resolving]
  - Rash [Recovering/Resolving]
